FAERS Safety Report 14825112 (Version 7)
Quarter: 2021Q3

REPORT INFORMATION
  Report Type: Spontaneous
  Country: SE (occurrence: SE)
  Receive Date: 20180430
  Receipt Date: 20210804
  Transmission Date: 20211014
  Serious: Yes (Hospitalization, Other)
  Sender: FDA-Public Use
  Company Number: SE-JNJFOC-20180422396

PATIENT
  Age: 60 Year
  Sex: Female

DRUGS (4)
  1. METFORMIN [Suspect]
     Active Substance: METFORMIN HYDROCHLORIDE
     Indication: DIABETES MELLITUS
     Route: 065
  2. IBUPROFEN. [Suspect]
     Active Substance: IBUPROFEN
     Indication: HYPERTONIA
     Route: 065
  3. IBUPROFEN. [Suspect]
     Active Substance: IBUPROFEN
     Indication: PAIN
     Dosage: 800 MG, BID
     Route: 065
  4. IODINE. [Suspect]
     Active Substance: IODINE
     Indication: COMPUTERISED TOMOGRAM
     Dosage: TWO IV INJECTIONS WERE REQUIRED, FOR A TOTAL OF 90ML OF LOW?OSMOLAR CONTRAST MEDIUM 300 MGI/ML CO..
     Route: 042

REACTIONS (7)
  - Blood creatinine increased [Recovering/Resolving]
  - Vomiting [Recovering/Resolving]
  - Proteinuria [Recovering/Resolving]
  - Acute kidney injury [Not Recovered/Not Resolved]
  - Nausea [Recovering/Resolving]
  - Deep vein thrombosis [Unknown]
  - Urine output decreased [Recovering/Resolving]
